FAERS Safety Report 24029394 (Version 7)
Quarter: 2025Q1

REPORT INFORMATION
  Report Type: Spontaneous
  Country: CA (occurrence: CA)
  Receive Date: 20240628
  Receipt Date: 20250311
  Transmission Date: 20250408
  Serious: Yes (Other)
  Sender: PFIZER
  Company Number: CA-PFIZER INC-202400200808

PATIENT
  Age: 63 Year
  Sex: Female

DRUGS (11)
  1. IBRANCE [Suspect]
     Active Substance: PALBOCICLIB
     Indication: Breast cancer metastatic
     Route: 048
     Dates: start: 2023
  2. IBRANCE [Suspect]
     Active Substance: PALBOCICLIB
     Route: 048
     Dates: start: 20230629, end: 20230719
  3. IBRANCE [Suspect]
     Active Substance: PALBOCICLIB
     Route: 048
     Dates: start: 20230725
  4. IBRANCE [Suspect]
     Active Substance: PALBOCICLIB
     Route: 048
     Dates: start: 20230830
  5. IBRANCE [Suspect]
     Active Substance: PALBOCICLIB
     Route: 048
     Dates: start: 20240103
  6. IBRANCE [Suspect]
     Active Substance: PALBOCICLIB
     Route: 048
     Dates: start: 20240619, end: 202407
  7. ACETAMINOPHEN\METHOCARBAMOL [Concomitant]
     Active Substance: ACETAMINOPHEN\METHOCARBAMOL
     Indication: Back disorder
  8. FULVESTRANT [Concomitant]
     Active Substance: FULVESTRANT
     Dates: start: 202306
  9. FULVESTRANT [Concomitant]
     Active Substance: FULVESTRANT
     Dates: start: 20230707
  10. LETROZOLE [Concomitant]
     Active Substance: LETROZOLE
  11. TORADOL [Concomitant]
     Active Substance: KETOROLAC TROMETHAMINE
     Indication: Back disorder

REACTIONS (14)
  - Gastrooesophageal reflux disease [Unknown]
  - Disease recurrence [Unknown]
  - Eye haemorrhage [Unknown]
  - Breast cancer metastatic [Not Recovered/Not Resolved]
  - Malignant neoplasm progression [Not Recovered/Not Resolved]
  - Therapeutic response unexpected [Unknown]
  - Furuncle [Unknown]
  - Malaise [Unknown]
  - Haematoma [Unknown]
  - Viral pharyngitis [Unknown]
  - Nasopharyngitis [Recovering/Resolving]
  - Sinusitis [Recovering/Resolving]
  - Urinary tract infection [Recovering/Resolving]
  - Illness [Recovering/Resolving]

NARRATIVE: CASE EVENT DATE: 20230101
